FAERS Safety Report 24743177 (Version 1)
Quarter: 2024Q4

REPORT INFORMATION
  Report Type: Spontaneous
  Country: US (occurrence: US)
  Receive Date: 20241217
  Receipt Date: 20241217
  Transmission Date: 20250115
  Serious: Yes (Other)
  Sender: PFIZER
  Company Number: US-PFIZER INC-PV202400163511

PATIENT
  Sex: Female

DRUGS (1)
  1. DEPO-PROVERA [Suspect]
     Active Substance: MEDROXYPROGESTERONE ACETATE
     Indication: Contraception
     Dosage: 150 MG, EVERY 3 MONTHS
     Route: 030
     Dates: start: 1998, end: 2000

REACTIONS (3)
  - Meningioma [Not Recovered/Not Resolved]
  - Spinal meningioma benign [Not Recovered/Not Resolved]
  - Bronchogenic cyst [Not Recovered/Not Resolved]

NARRATIVE: CASE EVENT DATE: 20030101
